FAERS Safety Report 5326722-6 (Version None)
Quarter: 2007Q2

REPORT INFORMATION
  Report Type: 
  Country: None (occurrence: None)
  Receive Date: 20070516
  Receipt Date: 20070504
  Transmission Date: 20071010
  Serious: Yes (Other)
  Sender: FDA-Public Use
  Company Number: FR-PFIZER INC-2007017238

PATIENT
  Sex: Female
  Weight: 60 kg

DRUGS (2)
  1. CELEBREX [Suspect]
     Indication: TENDONITIS
     Route: 048
     Dates: start: 20070220, end: 20070226
  2. IRBESARTAN [Concomitant]

REACTIONS (4)
  - ALOPECIA [None]
  - HYPERSENSITIVITY [None]
  - RASH MACULO-PAPULAR [None]
  - TOXIC SKIN ERUPTION [None]
